FAERS Safety Report 16788909 (Version 1)
Quarter: 2019Q3

REPORT INFORMATION
  Report Type: Spontaneous
  Country: US (occurrence: US)
  Receive Date: 20190910
  Receipt Date: 20190910
  Transmission Date: 20191005
  Serious: Yes (Other)
  Sender: FDA-Public Use
  Company Number: US-TEVA-2019-US-1105321

PATIENT
  Age: 28 Year
  Sex: Female

DRUGS (3)
  1. CISPLATIN. [Suspect]
     Active Substance: CISPLATIN
     Indication: CHOLANGIOCARCINOMA
     Dosage: TOTAL OF THREE CYCLES
     Route: 065
  2. GEMCITABINE. [Suspect]
     Active Substance: GEMCITABINE
     Indication: CHOLANGIOCARCINOMA
     Dosage: TOTAL OF THREE CYCLES
     Route: 065
  3. TENOFOVIR DISOPROXYL FUMARATE [Concomitant]
     Indication: HEPATITIS B
     Route: 065

REACTIONS (4)
  - Nausea [Unknown]
  - Drug intolerance [Unknown]
  - Thrombocytopenia [Unknown]
  - Vomiting [Unknown]
